FAERS Safety Report 16934846 (Version 2)
Quarter: 2021Q2

REPORT INFORMATION
  Report Type: Report from Study
  Country: IT (occurrence: IT)
  Receive Date: 20191018
  Receipt Date: 20210613
  Transmission Date: 20210716
  Serious: Yes (Hospitalization)
  Sender: FDA-Public Use
  Company Number: PHHO2019IT007894

PATIENT
  Age: 63 Year
  Sex: Female
  Weight: 73 kg

DRUGS (5)
  1. CARBOPLATIN. [Suspect]
     Active Substance: CARBOPLATIN
     Indication: BREAST CANCER
     Dosage: 745 MG, Q3W
     Route: 042
     Dates: start: 20190708, end: 20190708
  2. BUSCOPAN [Concomitant]
     Active Substance: BUTYLSCOPOLAMINE BROMIDE
     Indication: URINARY TRACT INFECTION
     Dosage: UNK
     Route: 065
     Dates: start: 20190722
  3. LAG525 [Suspect]
     Active Substance: IERAMILIMAB
     Indication: BREAST CANCER
     Dosage: 400 MG, Q3W
     Route: 042
     Dates: start: 20190708, end: 20190708
  4. SPARTALIZUMAB [Suspect]
     Active Substance: SPARTALIZUMAB
     Indication: BREAST CANCER
     Dosage: 300 MG, Q3W
     Route: 042
     Dates: start: 20190708, end: 20190708
  5. BUSCOPAN [Concomitant]
     Active Substance: BUTYLSCOPOLAMINE BROMIDE
     Indication: URINARY TRACT INFECTION

REACTIONS (1)
  - Dyspnoea [Recovered/Resolved with Sequelae]

NARRATIVE: CASE EVENT DATE: 20190729
